FAERS Safety Report 16421933 (Version 2)
Quarter: 2019Q2

REPORT INFORMATION
  Report Type: Spontaneous
  Country: US (occurrence: US)
  Receive Date: 20190612
  Receipt Date: 20190627
  Transmission Date: 20190711
  Serious: Yes (Hospitalization)
  Sender: FDA-Public Use
  Company Number: US-ASTRAZENECA-2019SE83612

PATIENT
  Age: 211 Month
  Sex: Male

DRUGS (2)
  1. FASENRA [Suspect]
     Active Substance: BENRALIZUMAB
     Indication: ASTHMA
     Dosage: 30 MG, ONCE EVERY 4 WEEKS FOR THE FIRST 3 DOSES, THEN ONCE EVERY 8 WEEKS THEREAFTER
     Route: 058
     Dates: start: 20190201
  2. FASENRA [Suspect]
     Active Substance: BENRALIZUMAB
     Indication: ASTHMA
     Route: 058
     Dates: start: 20190218, end: 20190530

REACTIONS (5)
  - Immunodeficiency [Not Recovered/Not Resolved]
  - Blood immunoglobulin G decreased [Recovered/Resolved]
  - Asthma [Recovered/Resolved]
  - Product dose omission [Unknown]
  - Pneumonia [Recovered/Resolved]

NARRATIVE: CASE EVENT DATE: 201903
